FAERS Safety Report 20528662 (Version 1)
Quarter: 2022Q1

REPORT INFORMATION
  Report Type: Spontaneous
  Country: US (occurrence: US)
  Receive Date: 20220228
  Receipt Date: 20220228
  Transmission Date: 20220423
  Serious: No
  Sender: FDA-Public Use
  Company Number: US-PFIZER INC-2021710329

PATIENT
  Age: 63 Year
  Sex: Male

DRUGS (2)
  1. XELJANZ [Suspect]
     Active Substance: TOFACITINIB CITRATE
     Dosage: 5 MG
     Dates: start: 20210507
  2. XELJANZ [Suspect]
     Active Substance: TOFACITINIB CITRATE
     Dosage: 5 MG
     Dates: start: 20211001

REACTIONS (7)
  - Throat irritation [Unknown]
  - Oropharyngeal pain [Unknown]
  - Dry mouth [Unknown]
  - Taste disorder [Unknown]
  - Skin disorder [Unknown]
  - Swelling face [Unknown]
  - Abdominal discomfort [Unknown]
